FAERS Safety Report 7332823-3 (Version None)
Quarter: 2011Q1

REPORT INFORMATION
  Report Type: 
  Country: None (occurrence: None)
  Receive Date: 20110304
  Receipt Date: 20110222
  Transmission Date: 20110831
  Serious: Yes (Other)
  Sender: FDA-Public Use
  Company Number: PHHY2011US14839

PATIENT
  Sex: Female

DRUGS (12)
  1. VITAMIN B-12 [Concomitant]
     Dosage: UNK
  2. GLUCOVANCE [Concomitant]
     Dosage: UNK
  3. ALTACE [Concomitant]
     Dosage: UNK
  4. EXJADE [Suspect]
     Indication: NEOPLASM
     Dosage: 2250 MG, UNK
     Route: 048
     Dates: start: 20110209
  5. OCUVITE LUTEIN [Concomitant]
     Dosage: UNK
  6. VITAMIN B6 [Concomitant]
     Dosage: UNK
  7. HYDROCORTISONE [Concomitant]
     Dosage: UNK
  8. TRAVATAN [Concomitant]
     Dosage: UNK
  9. COLACE [Concomitant]
     Dosage: UNK
  10. LASIX [Concomitant]
     Dosage: UNK
  11. LORTAB [Concomitant]
     Dosage: UNK
  12. PREVACID [Concomitant]
     Dosage: UNK

REACTIONS (4)
  - BLOOD GLUCOSE DECREASED [None]
  - ABDOMINAL DISTENSION [None]
  - ABDOMINAL PAIN [None]
  - NAUSEA [None]
